FAERS Safety Report 14007393 (Version 27)
Quarter: 2022Q1

REPORT INFORMATION
  Report Type: Report from Study
  Country: CA (occurrence: CA)
  Receive Date: 20170925
  Receipt Date: 20220215
  Transmission Date: 20220424
  Serious: Yes (Hospitalization, Other)
  Sender: FDA-Public Use
  Company Number: PHHY2014CA014290

PATIENT
  Age: 66 Year
  Sex: Male

DRUGS (38)
  1. SANDOSTATIN LAR DEPOT [Suspect]
     Active Substance: OCTREOTIDE ACETATE
     Indication: Acromegaly
     Dosage: 20 MG, QMO (EVERY 4 WEEKS)
     Route: 030
     Dates: start: 20070614
  2. SANDOSTATIN LAR DEPOT [Suspect]
     Active Substance: OCTREOTIDE ACETATE
  3. SANDOSTATIN LAR DEPOT [Suspect]
     Active Substance: OCTREOTIDE ACETATE
  4. FERROUS SULFATE ANHYDROUS [Concomitant]
     Active Substance: FERROUS SULFATE ANHYDROUS
     Indication: Product used for unknown indication
     Dosage: 1 DF, QD
     Route: 065
  5. IRON [Concomitant]
     Active Substance: IRON
     Indication: Product used for unknown indication
     Dosage: UNK
     Route: 065
     Dates: start: 201701
  6. CAL.D [Concomitant]
     Indication: Osteoporosis
     Dosage: 1 DF, BID (500 MG+400 UI PILL 1 PILL 2 X A DAY AT DINNER)
     Route: 048
  7. METFORMIN HYDROCHLORIDE [Concomitant]
     Active Substance: METFORMIN HYDROCHLORIDE
     Indication: Diabetes mellitus
     Dosage: 850 MG, BID
     Route: 048
  8. INDAPAMIDE [Concomitant]
     Active Substance: INDAPAMIDE
     Indication: Hypertension
     Dosage: 1 DF, QD
     Route: 048
     Dates: start: 2019
  9. RAN ATORVASTATIN [Concomitant]
     Indication: Blood cholesterol abnormal
     Dosage: UNK, QD (AT DINNER TIME), 1X/DAY AT SUPPER
     Route: 048
  10. DIABETA [Concomitant]
     Active Substance: GLYBURIDE
     Indication: Product used for unknown indication
     Dosage: 2 DF, BID
     Route: 065
  11. LIPITOR [Concomitant]
     Active Substance: ATORVASTATIN CALCIUM
     Indication: Product used for unknown indication
     Dosage: UNK, QD
     Route: 065
  12. TEVA TAMSULOSIN CR [Concomitant]
     Indication: Prostatic disorder
     Dosage: 1 UNK, QD
     Route: 048
  13. TEVA-DUTASTERIDE [Concomitant]
     Indication: Prostatic disorder
     Dosage: 1 UNK, QD
     Route: 048
  14. TRANDOLAPRIL [Concomitant]
     Active Substance: TRANDOLAPRIL
     Indication: Blood pressure abnormal
     Dosage: UNK, QD
     Route: 048
  15. RIVA-BACLOFEN [Concomitant]
     Indication: Muscle spasms
     Dosage: UNK, QD
     Route: 048
  16. RIVA-BACLOFEN [Concomitant]
     Dosage: UNK 1- MG PILL 2 PILLS 5 MG 1X PER DAY AT BEDTIME
     Route: 048
  17. JANUVIA [Concomitant]
     Active Substance: SITAGLIPTIN PHOSPHATE
     Indication: Diabetes mellitus
     Dosage: UNK UNK, QD (PILL)
     Route: 048
  18. EURO DOCUSATE C [Concomitant]
     Indication: Constipation
     Dosage: UNK UNK, BID
     Route: 048
  19. METHYLCOBALAMIN [Concomitant]
     Active Substance: METHYLCOBALAMIN
     Indication: Vitamin supplementation
     Dosage: UNK UNK, QD (AT BREAKFAST)
     Route: 048
  20. LANTUS [Concomitant]
     Active Substance: INSULIN GLARGINE
     Indication: Product used for unknown indication
     Dosage: UNK UNK, QD (IF NEEDED)
     Route: 058
  21. PIOGLITAZONE [Concomitant]
     Active Substance: PIOGLITAZONE
     Indication: Product used for unknown indication
     Dosage: UNK, QD
     Route: 065
  22. EMOLAX [Concomitant]
     Indication: Constipation
     Dosage: UNK, BID 1G/G POWDER TAKEN ORALLY 17 G IN LIQUID AND DRINK 2X PER DAY IF NEEDED (DISSOLVE 17G POWDER
     Route: 048
  23. AMLODIPINE MALEATE [Concomitant]
     Active Substance: AMLODIPINE MALEATE
     Indication: Blood pressure abnormal
     Dosage: UNK, QD
     Route: 048
  24. FUROSEMIDE [Concomitant]
     Active Substance: FUROSEMIDE
     Indication: Blood pressure abnormal
     Dosage: UNK, QD
     Route: 048
  25. QUETIAPINE [Concomitant]
     Active Substance: QUETIAPINE
     Indication: Sleep disorder
     Dosage: UNK (1/2 PILL 12.5 MG 1X PER DAY PM)
     Route: 048
  26. GABAPENTIN [Concomitant]
     Active Substance: GABAPENTIN
     Indication: Pain
     Dosage: UNK, QD
     Route: 048
  27. PANTOPRAZOLE [Concomitant]
     Active Substance: PANTOPRAZOLE
     Indication: Gastrointestinal disorder
     Dosage: 1 DF, QD
     Route: 048
  28. AMLODIPINE [Concomitant]
     Active Substance: AMLODIPINE BESYLATE
     Indication: Blood pressure abnormal
     Dosage: UNK, QD (5MG TOGETHER WITH SANDOZ.A 2.5 MG TO EQUAL 7.5 MG)
     Route: 065
  29. NOVO-GABAPENTIN [Concomitant]
     Indication: Pain
     Dosage: UNK, QD
     Route: 048
  30. JAMP SENNA S [Concomitant]
     Indication: Constipation
     Dosage: UNK, QD
     Route: 048
  31. HYDROCHLOROTHIAZIDE\TELMISARTAN [Concomitant]
     Active Substance: HYDROCHLOROTHIAZIDE\TELMISARTAN
     Indication: Product used for unknown indication
     Dosage: UNK, QD
     Route: 065
  32. METFORMIN [Concomitant]
     Active Substance: METFORMIN HYDROCHLORIDE
     Indication: Product used for unknown indication
     Dosage: UNK, BID
     Route: 048
  33. ASPIRIN [Concomitant]
     Active Substance: ASPIRIN
     Indication: Product used for unknown indication
     Dosage: UNK, QD
     Route: 065
  34. INSULIN NOS [Concomitant]
     Active Substance: INSULIN NOS
     Indication: Product used for unknown indication
     Dosage: UNK (100 U/ML)
     Route: 065
  35. MUPIROCIN [Concomitant]
     Active Substance: MUPIROCIN
     Indication: Mass
     Dosage: UNK
     Route: 065
  36. OXAZEPAM [Concomitant]
     Active Substance: OXAZEPAM
     Indication: Sleep disorder
     Dosage: 1 DF, OTHER
     Route: 048
  37. ACTOS [Concomitant]
     Active Substance: PIOGLITAZONE HYDROCHLORIDE
     Indication: Product used for unknown indication
     Dosage: UNK UNK, QD
     Route: 065
  38. LASIX [Concomitant]
     Active Substance: FUROSEMIDE
     Indication: Hypertension
     Dosage: 1 DF, QD
     Route: 048
     Dates: start: 2019, end: 2019

REACTIONS (28)
  - Bone marrow disorder [Unknown]
  - Cardiac arrest [Unknown]
  - Post procedural complication [Unknown]
  - Blood pressure increased [Unknown]
  - Loss of consciousness [Unknown]
  - Injury [Unknown]
  - Chills [Unknown]
  - Wound [Unknown]
  - Anaemia [Unknown]
  - Oropharyngeal pain [Unknown]
  - Contusion [Unknown]
  - Scratch [Unknown]
  - Blister [Unknown]
  - Arthralgia [Unknown]
  - Infection [Unknown]
  - Prostatomegaly [Unknown]
  - Fall [Unknown]
  - Procedural pain [Unknown]
  - Musculoskeletal pain [Unknown]
  - Heart rate decreased [Unknown]
  - Injection site pain [Recovering/Resolving]
  - Vomiting [Unknown]
  - Tremor [Unknown]
  - Malaise [Unknown]
  - Chest pain [Unknown]
  - Blood pressure decreased [Unknown]
  - Dyspnoea [Unknown]
  - Nausea [Unknown]

NARRATIVE: CASE EVENT DATE: 20140122
